FAERS Safety Report 20340467 (Version 6)
Quarter: 2022Q1

REPORT INFORMATION
  Report Type: Report from Study
  Country: CZ (occurrence: CZ)
  Receive Date: 20220117
  Receipt Date: 20220325
  Transmission Date: 20220423
  Serious: Yes (Hospitalization, Other)
  Sender: FDA-Public Use
  Company Number: CZ-NOVARTISPH-NVSC2022CZ006544

PATIENT
  Age: 0 Year
  Sex: Female
  Weight: 10 kg

DRUGS (4)
  1. ZOLGENSMA [Suspect]
     Active Substance: ONASEMNOGENE ABEPARVOVEC-XIOI
     Indication: Spinal muscular atrophy
     Dosage: 41.30 ML
     Route: 041
     Dates: start: 20210218
  2. VIGANTOL [Concomitant]
     Indication: Product used for unknown indication
     Dosage: 1 DRP, QD
     Route: 048
  3. LACTOBACILLUS REUTERI [Concomitant]
     Active Substance: LACTOBACILLUS REUTERI
     Indication: Product used for unknown indication
     Dosage: 5 DRP, QD
     Route: 048
  4. MALTOFER [Concomitant]
     Indication: Product used for unknown indication
     Dosage: 5 DRP (5-05 DROPS)
     Route: 065
     Dates: start: 20210419

REACTIONS (9)
  - Type 1 diabetes mellitus [Not Recovered/Not Resolved]
  - Thirst [Recovering/Resolving]
  - Pollakiuria [Recovering/Resolving]
  - Weight decreased [Recovering/Resolving]
  - Liver disorder [Recovering/Resolving]
  - Hepatic enzyme increased [Unknown]
  - Coagulopathy [Recovered/Resolved]
  - Thrombocytopenia [Unknown]
  - Vomiting [Recovered/Resolved]

NARRATIVE: CASE EVENT DATE: 20210220
